FAERS Safety Report 20109031 (Version 1)
Quarter: 2021Q4

REPORT INFORMATION
  Report Type: Other
  Country: CN (occurrence: CN)
  Receive Date: 20211124
  Receipt Date: 20211124
  Transmission Date: 20220303
  Serious: Yes (Other)
  Sender: FDA-Public Use
  Company Number: CN-GE HEALTHCARE-2021CSU005798

PATIENT

DRUGS (2)
  1. OMNIPAQUE [Suspect]
     Active Substance: IOHEXOL
     Indication: Cystogram
     Dosage: 5 ML, SINGLE
     Route: 043
     Dates: start: 20211029, end: 20211029
  2. OMNIPAQUE [Suspect]
     Active Substance: IOHEXOL
     Indication: Vesicoureteric reflux

REACTIONS (2)
  - Cough [Recovering/Resolving]
  - Rhinorrhoea [Recovering/Resolving]

NARRATIVE: CASE EVENT DATE: 20211029
